FAERS Safety Report 5790393-5 (Version None)
Quarter: 2008Q2

REPORT INFORMATION
  Report Type: 
  Country: None (occurrence: None)
  Receive Date: 20080626
  Receipt Date: 20080428
  Transmission Date: 20081010
  Serious: No
  Sender: FDA-Public Use
  Company Number: A0724997A

PATIENT
  Age: 56 Year
  Sex: Female

DRUGS (5)
  1. ALLI [Suspect]
  2. TUMS [Concomitant]
  3. FIBER [Concomitant]
  4. PAIN RELIEVER [Concomitant]
  5. IRON SUPPLEMENTS [Concomitant]

REACTIONS (5)
  - CONSTIPATION [None]
  - DIARRHOEA [None]
  - FAECES HARD [None]
  - INTESTINAL FUNCTIONAL DISORDER [None]
  - PHARMACEUTICAL PRODUCT COMPLAINT [None]
